FAERS Safety Report 4464139-7 (Version None)
Quarter: 2004Q4

REPORT INFORMATION
  Report Type: 
  Country: None (occurrence: None)
  Receive Date: 20041001
  Receipt Date: 20040915
  Transmission Date: 20050328
  Serious: Yes (Death)
  Sender: FDA-Public Use
  Company Number: JP-MERCK-0409USA01430

PATIENT
  Age: 39 Year
  Sex: Male

DRUGS (1)
  1. PRIMAXIN [Suspect]
     Indication: CELLULITIS
     Route: 051
     Dates: start: 20040910, end: 20040910

REACTIONS (1)
  - ANAPHYLACTIC SHOCK [None]
